FAERS Safety Report 19020075 (Version 1)
Quarter: 2021Q1

REPORT INFORMATION
  Report Type: Spontaneous
  Country: DE (occurrence: DE)
  Receive Date: 20210317
  Receipt Date: 20210317
  Transmission Date: 20210420
  Serious: Yes (Hospitalization)
  Sender: FDA-Public Use
  Company Number: DE-TEVA-2021-DE-1890187

PATIENT
  Age: 55 Year
  Sex: Male

DRUGS (4)
  1. PANTOPRAZOL [Concomitant]
     Active Substance: PANTOPRAZOLE SODIUM
     Dosage: 40 MILLIGRAM DAILY;  1?0?0?0
  2. RITUXIMAB. [Suspect]
     Active Substance: RITUXIMAB
     Dosage: FIRST HANDING 25082020
     Route: 065
  3. METHYLPREDNISOLON [Suspect]
     Active Substance: METHYLPREDNISOLONE
     Dosage: 1 G, 10082020
     Route: 065
  4. PREDNISOLON [Suspect]
     Active Substance: PREDNISOLONE
     Dosage: 80 MILLIGRAM DAILY;  1?0?0?0
     Route: 065

REACTIONS (4)
  - Chest pain [Unknown]
  - General physical health deterioration [Unknown]
  - Cough [Unknown]
  - Musculoskeletal pain [Unknown]
